FAERS Safety Report 10867870 (Version 1)
Quarter: 2015Q1

REPORT INFORMATION
  Report Type: Spontaneous
  Country: GB (occurrence: GB)
  Receive Date: 20150225
  Receipt Date: 20150225
  Transmission Date: 20150721
  Serious: Yes (Other)
  Sender: FDA-Public Use
  Company Number: GB-WATSON-2015-02945

PATIENT
  Age: 25 Year
  Sex: Female
  Weight: 47 kg

DRUGS (1)
  1. TRIMETHOPRIM (UNKNOWN) [Suspect]
     Active Substance: TRIMETHOPRIM
     Indication: URINARY TRACT INFECTION
     Dosage: 200 MG, DAILY
     Route: 048
     Dates: start: 20150124, end: 20150127

REACTIONS (9)
  - Muscular weakness [Recovering/Resolving]
  - Dysgeusia [Recovered/Resolved]
  - Myalgia [Recovering/Resolving]
  - Tension [Unknown]
  - Muscle twitching [Not Recovered/Not Resolved]
  - Tremor [Unknown]
  - Fatigue [Recovering/Resolving]
  - Nausea [Recovering/Resolving]
  - Decreased appetite [Recovering/Resolving]

NARRATIVE: CASE EVENT DATE: 20150124
